FAERS Safety Report 4445920-7 (Version None)
Quarter: 2004Q3

REPORT INFORMATION
  Report Type: 
  Country: None (occurrence: None)
  Receive Date: 20040910
  Receipt Date: 20040830
  Transmission Date: 20050211
  Serious: Yes (Hospitalization)
  Sender: FDA-Public Use
  Company Number: PHEH2004US09372

PATIENT
  Age: 54 Year
  Sex: Male

DRUGS (13)
  1. ZELNORM [Suspect]
     Indication: IRRITABLE BOWEL SYNDROME
     Dosage: 6 MG, BID
     Route: 048
     Dates: start: 20040813, end: 20040829
  2. DEPAKOTE [Concomitant]
  3. ASPIRIN [Concomitant]
  4. ZOLOFT [Concomitant]
  5. PRILOSEC [Concomitant]
  6. LIPITOR [Concomitant]
  7. M.V.I. [Concomitant]
  8. ACTOS [Concomitant]
  9. ALTACE [Concomitant]
  10. COLACE [Concomitant]
  11. CLOZARIL [Concomitant]
  12. FIBERCON [Concomitant]
  13. REGLAN [Concomitant]

REACTIONS (3)
  - INCOHERENT [None]
  - LETHARGY [None]
  - MENTAL STATUS CHANGES [None]
